FAERS Safety Report 12519973 (Version 2)
Quarter: 2016Q3

REPORT INFORMATION
  Report Type: Spontaneous
  Country: DK (occurrence: DK)
  Receive Date: 20160630
  Receipt Date: 20160714
  Transmission Date: 20161109
  Serious: Yes (Hospitalization)
  Sender: FDA-Public Use
  Company Number: DK-FERRINGPH-2016FE02866

PATIENT

DRUGS (1)
  1. FIRMAGON [Suspect]
     Active Substance: DEGARELIX ACETATE
     Indication: HORMONE-REFRACTORY PROSTATE CANCER
     Route: 065

REACTIONS (2)
  - Fluid retention [Unknown]
  - Oedema [Unknown]
